FAERS Safety Report 18991599 (Version 3)
Quarter: 2021Q2

REPORT INFORMATION
  Report Type: Report from Study
  Country: AU (occurrence: AU)
  Receive Date: 20210310
  Receipt Date: 20210614
  Transmission Date: 20210717
  Serious: Yes (Hospitalization, Other)
  Sender: FDA-Public Use
  Company Number: AU-JNJFOC-20210207296

PATIENT
  Age: 32 Year
  Sex: Female

DRUGS (7)
  1. MACITENTAN [Suspect]
     Active Substance: MACITENTAN
     Indication: PULMONARY ARTERIAL HYPERTENSION
     Route: 048
     Dates: start: 20180215
  2. AMILORIDE [Concomitant]
     Active Substance: AMILORIDE
  3. SELEXIPAG [Suspect]
     Active Substance: SELEXIPAG
     Indication: PULMONARY ARTERIAL HYPERTENSION
     Route: 048
     Dates: start: 20201223
  4. ADCIRCA [Suspect]
     Active Substance: TADALAFIL
     Dates: start: 20180215
  5. OXYGEN. [Concomitant]
     Active Substance: OXYGEN
  6. KALURIL [AMILORIDE HYDROCHLORIDE] [Concomitant]
  7. SPAN?K [Concomitant]
     Active Substance: POTASSIUM CHLORIDE

REACTIONS (5)
  - Hospitalisation [Unknown]
  - Device expulsion [Unknown]
  - Right ventricular failure [Unknown]
  - Heavy menstrual bleeding [Unknown]
  - Abnormal faeces [Unknown]

NARRATIVE: CASE EVENT DATE: 202102
